FAERS Safety Report 9610327 (Version 4)
Quarter: 2014Q2

REPORT INFORMATION
  Report Type: Spontaneous
  Country: US (occurrence: US)
  Receive Date: 20131009
  Receipt Date: 20140414
  Transmission Date: 20141212
  Serious: No
  Sender: FDA-Public Use
  Company Number: US-009507513-1309USA014425

PATIENT
  Age: 71 Year
  Sex: Female

DRUGS (3)
  1. PEGINTRON [Suspect]
     Indication: HEPATITIS C
     Dosage: REDIPEN
     Dates: start: 20130921
  2. REBETOL [Suspect]
     Indication: HEPATITIS C
     Dosage: UNK
     Route: 048
     Dates: start: 20130921
  3. TELAPREVIR [Suspect]
     Indication: HEPATITIS C
     Dosage: UNK
     Dates: start: 20130921, end: 20131214

REACTIONS (46)
  - Bone pain [Recovered/Resolved]
  - Eye swelling [Unknown]
  - Poor quality sleep [Unknown]
  - Injection site reaction [Unknown]
  - Mental disorder [Unknown]
  - Vulvovaginal pruritus [Recovered/Resolved]
  - Headache [Recovered/Resolved]
  - Injection site rash [Unknown]
  - Rash pruritic [Unknown]
  - Pruritus [Unknown]
  - Chills [Unknown]
  - Muscle spasms [Recovered/Resolved]
  - Somnolence [Unknown]
  - Fatigue [Unknown]
  - Cough [Unknown]
  - Nocturia [Unknown]
  - Pollakiuria [Unknown]
  - Anal pruritus [Unknown]
  - Vulvovaginal pruritus [Unknown]
  - Urethritis noninfective [Unknown]
  - Dysuria [Unknown]
  - Influenza like illness [Unknown]
  - Pain [Unknown]
  - Myalgia [Unknown]
  - Injection site erythema [Unknown]
  - Coordination abnormal [Unknown]
  - Balance disorder [Unknown]
  - Ataxia [Unknown]
  - Decreased appetite [Unknown]
  - Fatigue [Unknown]
  - Renal disorder [Unknown]
  - Urinary tract disorder [Unknown]
  - Injection site erythema [Unknown]
  - Influenza [Unknown]
  - Pruritus [Recovered/Resolved]
  - Influenza like illness [Unknown]
  - White blood cell count increased [Unknown]
  - Headache [Unknown]
  - Fatigue [Unknown]
  - Influenza [Unknown]
  - Chills [Unknown]
  - Injection site erythema [Unknown]
  - Injection site pain [Unknown]
  - Injection site pruritus [Unknown]
  - Headache [Unknown]
  - Alopecia [Unknown]
